FAERS Safety Report 19481872 (Version 1)
Quarter: 2021Q3

REPORT INFORMATION
  Report Type: Spontaneous
  Country: ES (occurrence: ES)
  Receive Date: 20210701
  Receipt Date: 20210701
  Transmission Date: 20211014
  Serious: Yes (Hospitalization, Other)
  Sender: FDA-Public Use
  Company Number: ES-ACCORD-229736

PATIENT
  Age: 57 Year
  Sex: Male

DRUGS (1)
  1. PACLITAXEL/PACLITAXEL LIPOSOME [Suspect]
     Active Substance: PACLITAXEL
     Indication: BREAST CANCER RECURRENT
     Dosage: CUMULATIVE DOSE: 6 CYCLICAL

REACTIONS (3)
  - Dermatomyositis [Recovered/Resolved]
  - Drug eruption [Recovered/Resolved]
  - Neutropenic colitis [Recovered/Resolved]
